FAERS Safety Report 6819140-2 (Version None)
Quarter: 2010Q2

REPORT INFORMATION
  Report Type: 
  Country: None (occurrence: None)
  Receive Date: 20100630
  Receipt Date: 20100630
  Transmission Date: 20101027
  Serious: Yes (Other)
  Sender: FDA-Public Use
  Company Number: 1022556-2010-00039

PATIENT
  Sex: Male

DRUGS (1)
  1. ICY HOT BACK PATCH 1CT [Suspect]
     Indication: MYALGIA
     Dosage: TOPICAL ONCE
     Route: 061

REACTIONS (4)
  - BLISTER [None]
  - IMPAIRED WORK ABILITY [None]
  - RASH PRURITIC [None]
  - SKIN BURNING SENSATION [None]
